FAERS Safety Report 23873051 (Version 1)
Quarter: 2024Q2

REPORT INFORMATION
  Report Type: Spontaneous
  Country: KR (occurrence: KR)
  Receive Date: 20240520
  Receipt Date: 20240520
  Transmission Date: 20240716
  Serious: Yes (Death, Hospitalization, Other)
  Sender: FDA-Public Use
  Company Number: KR-STERISCIENCE B.V.-2024-ST-000649

PATIENT
  Age: 59 Year
  Sex: Male
  Weight: 65 kg

DRUGS (8)
  1. SODIUM BICARBONATE [Suspect]
     Active Substance: SODIUM BICARBONATE
     Indication: Tumour lysis syndrome
     Dosage: UNK
     Route: 065
  2. SALINE [Suspect]
     Active Substance: SODIUM CHLORIDE
     Indication: Tumour lysis syndrome
     Dosage: UNK
     Route: 065
  3. FUROSEMIDE [Suspect]
     Active Substance: FUROSEMIDE
     Indication: Tumour lysis syndrome
     Dosage: UNK
     Route: 065
  4. AFATINIB [Concomitant]
     Active Substance: AFATINIB
     Indication: Lung adenocarcinoma stage IV
     Dosage: 40 MILLIGRAM, QD
     Route: 048
  5. AFATINIB [Concomitant]
     Active Substance: AFATINIB
     Indication: Malignant pleural effusion
  6. AFATINIB [Concomitant]
     Active Substance: AFATINIB
     Indication: Metastases to lymph nodes
  7. AFATINIB [Concomitant]
     Active Substance: AFATINIB
     Indication: Metastases to bone
  8. AFATINIB [Concomitant]
     Active Substance: AFATINIB
     Indication: Metastases to central nervous system

REACTIONS (1)
  - Drug ineffective for unapproved indication [Fatal]
